FAERS Safety Report 6373416-4 (Version None)
Quarter: 2009Q3

REPORT INFORMATION
  Report Type: 
  Country: None (occurrence: None)
  Receive Date: 20090924
  Receipt Date: 20090316
  Transmission Date: 20100115
  Serious: No
  Sender: FDA-Public Use
  Company Number: US-ASTRAZENECA-2009UW06816

PATIENT
  Age: 62 Year
  Sex: Female
  Weight: 44 kg

DRUGS (6)
  1. SEROQUEL [Suspect]
     Indication: BIPOLAR DISORDER
     Route: 048
     Dates: start: 20050101
  2. SEROQUEL [Suspect]
     Route: 048
  3. RESTERIL [Concomitant]
  4. SKELAXIN [Concomitant]
  5. ZERTAC [Concomitant]
  6. HYDROCODONE [Concomitant]

REACTIONS (5)
  - ABNORMAL DREAMS [None]
  - HAEMORRHOIDAL HAEMORRHAGE [None]
  - HUNGER [None]
  - PNEUMONIA [None]
  - WEIGHT INCREASED [None]
